FAERS Safety Report 20691492 (Version 1)
Quarter: 2022Q2

REPORT INFORMATION
  Report Type: Spontaneous
  Country: US (occurrence: US)
  Receive Date: 20220408
  Receipt Date: 20220408
  Transmission Date: 20220720
  Serious: Yes (Hospitalization)
  Sender: FDA-Public Use
  Company Number: US-ELI_LILLY_AND_COMPANY-US202203012615

PATIENT
  Age: 77 Year
  Sex: Female

DRUGS (17)
  1. HUMALOG [Suspect]
     Active Substance: INSULIN LISPRO
     Indication: Type 2 diabetes mellitus
     Dosage: 24 U, EACH MORNING
     Route: 058
     Dates: start: 202101
  2. HUMALOG [Suspect]
     Active Substance: INSULIN LISPRO
     Indication: Type 2 diabetes mellitus
     Dosage: 24 U, EACH MORNING
     Route: 058
     Dates: start: 202101
  3. HUMALOG [Suspect]
     Active Substance: INSULIN LISPRO
     Dosage: 20 U, DAILY (LUNCH)
     Route: 058
  4. HUMALOG [Suspect]
     Active Substance: INSULIN LISPRO
     Dosage: 20 U, DAILY (LUNCH)
     Route: 058
  5. HUMALOG [Suspect]
     Active Substance: INSULIN LISPRO
     Dosage: 20 U, EACH EVENING
     Route: 058
  6. HUMALOG [Suspect]
     Active Substance: INSULIN LISPRO
     Dosage: 20 U, EACH EVENING
     Route: 058
  7. HUMALOG [Suspect]
     Active Substance: INSULIN LISPRO
     Dosage: 24 UNITS AM, 20 UNITS LUNCH AND 20 UNITS DINNER
     Route: 058
  8. HUMALOG [Suspect]
     Active Substance: INSULIN LISPRO
     Dosage: 24 UNITS AM, 20 UNITS LUNCH AND 20 UNITS DINNER
     Route: 058
  9. HUMALOG [Suspect]
     Active Substance: INSULIN LISPRO
     Dosage: 24 UNITS AM, 20 UNITS LUNCH AND 20 UNITS DINNER
     Route: 058
  10. HUMALOG [Suspect]
     Active Substance: INSULIN LISPRO
     Dosage: 24 UNITS AM, 20 UNITS LUNCH AND 20 UNITS DINNER
     Route: 058
  11. HUMALOG [Suspect]
     Active Substance: INSULIN LISPRO
     Dosage: 24 UNITS AM, 20 UNITS LUNCH AND 20 UNITS DINNER
     Route: 058
  12. HUMALOG [Suspect]
     Active Substance: INSULIN LISPRO
     Dosage: 24 UNITS AM, 20 UNITS LUNCH AND 20 UNITS DINNER
     Route: 058
  13. HUMALOG [Suspect]
     Active Substance: INSULIN LISPRO
     Dosage: 24 UNITS AM, 20 UNITS LUNCH AND 20 UNITS DINNER
     Route: 058
  14. HUMALOG [Suspect]
     Active Substance: INSULIN LISPRO
     Dosage: 24 UNITS AM, 20 UNITS LUNCH AND 20 UNITS DINNER
     Route: 058
  15. HUMALOG [Suspect]
     Active Substance: INSULIN LISPRO
     Dosage: 24 UNITS AM, 20 UNITS LUNCH AND 20 UNITS DINNER
     Route: 058
  16. HUMULIN R [Suspect]
     Active Substance: INSULIN HUMAN
     Indication: Type 2 diabetes mellitus
     Dosage: UNK, UNKNOWN
     Route: 058
  17. LANTUS [Concomitant]
     Active Substance: INSULIN GLARGINE
     Indication: Type 2 diabetes mellitus
     Dosage: 18 U, DAILY
     Route: 065

REACTIONS (8)
  - Loss of consciousness [Recovered/Resolved]
  - Head injury [Recovered/Resolved]
  - Pulmonary oedema [Recovering/Resolving]
  - Visual impairment [Unknown]
  - Periarthritis [Unknown]
  - Glycosylated haemoglobin increased [Recovered/Resolved]
  - Impaired healing [Not Recovered/Not Resolved]
  - Dyspnoea [Unknown]

NARRATIVE: CASE EVENT DATE: 20210801
